FAERS Safety Report 8543859-9 (Version None)
Quarter: 2012Q3

REPORT INFORMATION
  Report Type: 
  Country: None (occurrence: None)
  Receive Date: 20120727
  Receipt Date: 20120720
  Transmission Date: 20120928
  Serious: Yes (Other)
  Sender: FDA-Public Use
  Company Number: PHHO2012AU007842

PATIENT
  Sex: Female
  Weight: 79.5 kg

DRUGS (9)
  1. GILENYA [Suspect]
     Indication: MULTIPLE SCLEROSIS RELAPSE
     Dosage: 0.5 MG, QD
     Route: 048
     Dates: start: 20110323
  2. ETHINYL ESTRADIOL [Concomitant]
     Dosage: 30 UG, UNK
     Route: 065
  3. TRIPHASIL-21 [Concomitant]
     Indication: CONTRACEPTION
     Dosage: 1 DF, QD
     Dates: start: 19990801, end: 20120514
  4. NORVASC [Concomitant]
     Indication: HYPERTENSION
     Dosage: 10 MG, QD
     Route: 065
     Dates: start: 20110829, end: 20120514
  5. ETHINYL ESTRADIOL [Concomitant]
     Dosage: 40 UG, UNK
     Route: 065
  6. RAMIPRIL [Concomitant]
     Indication: HYPERTENSION
     Dosage: 10 MG, QD
     Route: 065
     Dates: start: 20110627, end: 20120514
  7. LEVONORGESTREL [Concomitant]
     Dosage: 50 UG, UNK
     Route: 065
  8. LEVONORGESTREL [Concomitant]
     Dosage: 75 UG, UNK
     Route: 065
  9. LEVONORGESTREL [Concomitant]
     Dosage: 125 UG, UNK
     Route: 065

REACTIONS (4)
  - EPSTEIN-BARR VIRUS ANTIGEN POSITIVE [None]
  - CYTOMEGALOVIRUS TEST POSITIVE [None]
  - THYROID NEOPLASM [None]
  - EPSTEIN-BARR VIRUS ANTIBODY POSITIVE [None]
